FAERS Safety Report 9550084 (Version 5)
Quarter: 2013Q4

REPORT INFORMATION
  Report Type: Report from Study
  Country: US (occurrence: US)
  Receive Date: 20130924
  Receipt Date: 20131127
  Transmission Date: 20140711
  Serious: Yes (Hospitalization, Disabling, Other)
  Sender: FDA-Public Use
  Company Number: US-US-EMD SERONO, INC.-7238092

PATIENT
  Age: 52 Year
  Sex: Female
  Weight: 77 kg

DRUGS (4)
  1. REBIF [Suspect]
     Indication: MULTIPLE SCLEROSIS
     Route: 058
     Dates: start: 20090514, end: 20130925
  2. REBIF [Suspect]
     Route: 058
     Dates: start: 201311
  3. AMITRIPTYLINE [Concomitant]
     Indication: FIBROMYALGIA
  4. WELLBUTRIN                         /00700501/ [Concomitant]
     Indication: DEPRESSION

REACTIONS (11)
  - Cellulitis [Recovering/Resolving]
  - Loss of consciousness [Recovered/Resolved]
  - Near drowning [Recovered/Resolved]
  - Blindness [Recovering/Resolving]
  - Fall [Not Recovered/Not Resolved]
  - Rib fracture [Not Recovered/Not Resolved]
  - Amnesia [Unknown]
  - Abdominal discomfort [Recovered/Resolved]
  - Head discomfort [Unknown]
  - Muscle twitching [Unknown]
  - Pain of skin [Unknown]
